FAERS Safety Report 10215962 (Version 2)
Quarter: 2014Q2

REPORT INFORMATION
  Report Type: Spontaneous
  Country: US (occurrence: None)
  Receive Date: 20140602
  Receipt Date: 20140630
  Transmission Date: 20141212
  Serious: Yes (Other)
  Sender: FDA-Public Use
  Company Number: 2014-US-006551

PATIENT
  Age: 34 Year
  Sex: Male
  Weight: 79.4 kg

DRUGS (3)
  1. XYREM [Suspect]
     Indication: NARCOLEPSY
     Dosage: 3 G, BID, ORAL
     Route: 048
     Dates: start: 200603, end: 2006
  2. XYREM [Suspect]
     Indication: SOMNOLENCE
     Dosage: 3 G, BID, ORAL
     Route: 048
     Dates: start: 200603, end: 2006
  3. ADDERALL (AMFETAMINE ASPARTATE, AMFETAMINE SUKLFATE, MDEXAMFETAMINE SACCHARATE, DEXAMFETAMINE SULFATE) [Concomitant]

REACTIONS (2)
  - Road traffic accident [None]
  - Joint injury [None]
